FAERS Safety Report 4465969-8 (Version None)
Quarter: 2004Q4

REPORT INFORMATION
  Report Type: 
  Country: None (occurrence: None)
  Receive Date: 20041001
  Receipt Date: 20041001
  Transmission Date: 20050328
  Serious: Yes (Hospitalization, Other)
  Sender: FDA-Public Use
  Company Number: None

PATIENT
  Age: 52 Year
  Sex: Female
  Weight: 55.3388 kg

DRUGS (2)
  1. VIOXX [Suspect]
     Indication: EAR INFECTION
     Dosage: 1 PILL
  2. VIOXX [Suspect]
     Indication: NECK PAIN
     Dosage: 1 PILL

REACTIONS (5)
  - BLOOD PRESSURE INCREASED [None]
  - CAROTID BRUIT [None]
  - CEREBROVASCULAR ACCIDENT [None]
  - DISORIENTATION [None]
  - FIBROMUSCULAR DYSPLASIA [None]
